FAERS Safety Report 5126242-8 (Version None)
Quarter: 2006Q3

REPORT INFORMATION
  Report Type: 
  Country: None (occurrence: None)
  Receive Date: 20060824
  Receipt Date: 20060609
  Transmission Date: 20061208
  Serious: Yes (Other)
  Sender: FDA-Public Use
  Company Number: WAES 0606USA01880

PATIENT

DRUGS (1)
  1. VYTORIN [Suspect]
     Dosage: 10-80 MG/PO
     Route: 048

REACTIONS (1)
  - RHABDOMYOLYSIS [None]
